FAERS Safety Report 13162693 (Version 1)
Quarter: 2017Q1

REPORT INFORMATION
  Report Type: Spontaneous
  Country: ES (occurrence: ES)
  Receive Date: 20170130
  Receipt Date: 20170130
  Transmission Date: 20170428
  Serious: Yes (Death)
  Sender: FDA-Public Use
  Company Number: ES-JNJFOC-20170125255

PATIENT

DRUGS (1)
  1. DOXORUBICIN HYDROCHLORIDE. [Suspect]
     Active Substance: DOXORUBICIN HYDROCHLORIDE
     Indication: BREAST CANCER
     Dosage: MEAN DOSE 243 MG/M2
     Route: 065

REACTIONS (5)
  - Left ventricular dysfunction [Unknown]
  - Cardiotoxicity [Unknown]
  - Cardiac failure [Unknown]
  - Cardiac death [Fatal]
  - Diastolic dysfunction [Unknown]
